FAERS Safety Report 7866357-4 (Version None)
Quarter: 2011Q4

REPORT INFORMATION
  Report Type: 
  Country: None (occurrence: None)
  Receive Date: 20111028
  Receipt Date: 20110603
  Transmission Date: 20120403
  Serious: No
  Sender: FDA-Public Use
  Company Number: US-GLAXOSMITHKLINE-A0930175A

PATIENT
  Age: 63 Year
  Sex: Female
  Weight: 83.2 kg

DRUGS (9)
  1. ADVAIR DISKUS 100/50 [Suspect]
     Indication: ASTHMA
     Dosage: 1PUFF PER DAY
     Route: 055
     Dates: start: 20071101
  2. FORTEO [Concomitant]
  3. BONIVA [Concomitant]
  4. CALCIUM CARBONATE [Concomitant]
  5. MULTI-VITAMIN [Concomitant]
  6. ATACAND [Concomitant]
  7. PAROXETINE HCL [Concomitant]
  8. ZYRTEC [Concomitant]
  9. ACIPHEX [Concomitant]

REACTIONS (3)
  - TONGUE BLISTERING [None]
  - DRY MOUTH [None]
  - TONGUE CYST [None]
